FAERS Safety Report 6713691-7 (Version None)
Quarter: 2010Q2

REPORT INFORMATION
  Report Type: 
  Country: None (occurrence: None)
  Receive Date: 20100503
  Receipt Date: 20070725
  Transmission Date: 20101027
  Serious: Yes (Other)
  Sender: FDA-Public Use
  Company Number: 1000013494

PATIENT
  Age: 55 Year
  Sex: Female

DRUGS (3)
  1. CITALOPRAM HYDROBROMIDE [Suspect]
     Indication: DEPRESSION
     Dosage: 20 MG (20 MG,1 IN 1 D)
     Dates: start: 20050701
  2. IMIPRAMINE [Suspect]
  3. LEVOTHYROXINE SODIUM [Concomitant]

REACTIONS (1)
  - ANGLE CLOSURE GLAUCOMA [None]
